FAERS Safety Report 4949016-7 (Version None)
Quarter: 2006Q1

REPORT INFORMATION
  Report Type: 
  Country: None (occurrence: None)
  Receive Date: 20060321
  Receipt Date: 20060307
  Transmission Date: 20060701
  Serious: Yes (Other)
  Sender: FDA-Public Use
  Company Number: 2006CG00453

PATIENT
  Age: 59 Year
  Sex: Male

DRUGS (9)
  1. CRESTOR [Suspect]
     Indication: HYPERCHOLESTEROLAEMIA
     Route: 048
     Dates: start: 20050301, end: 20050801
  2. CRESTOR [Suspect]
     Indication: HYPERTRIGLYCERIDAEMIA
     Route: 048
     Dates: start: 20050301, end: 20050801
  3. CRESTOR [Suspect]
     Route: 048
     Dates: start: 20050801, end: 20050801
  4. CRESTOR [Suspect]
     Route: 048
     Dates: start: 20050801, end: 20050801
  5. CRESTOR [Suspect]
     Route: 048
     Dates: start: 20051201, end: 20060201
  6. CRESTOR [Suspect]
     Route: 048
     Dates: start: 20051201, end: 20060201
  7. CRESTOR [Suspect]
     Route: 048
     Dates: start: 20060201, end: 20060226
  8. CRESTOR [Suspect]
     Route: 048
     Dates: start: 20060201, end: 20060226
  9. ZESTRIL [Concomitant]
     Indication: HYPERTENSION
     Route: 048
     Dates: start: 19960101

REACTIONS (13)
  - ASTHENIA [None]
  - BALANCE DISORDER [None]
  - BLOOD CREATINE PHOSPHOKINASE INCREASED [None]
  - DISTURBANCE IN ATTENTION [None]
  - DIZZINESS [None]
  - EYELID FUNCTION DISORDER [None]
  - FEELING ABNORMAL [None]
  - GAMMA-GLUTAMYLTRANSFERASE INCREASED [None]
  - HEADACHE [None]
  - MENINGORRHAGIA [None]
  - MUSCLE SPASMS [None]
  - MYALGIA [None]
  - TRANSAMINASES INCREASED [None]
